FAERS Safety Report 4601602-X (Version None)
Quarter: 2005Q1

REPORT INFORMATION
  Report Type: 
  Country: None (occurrence: None)
  Receive Date: 20050308
  Receipt Date: 20040111
  Transmission Date: 20050727
  Serious: Yes (Other)
  Sender: FDA-Public Use
  Company Number: US-GLAXOSMITHKLINE-A0540261A

PATIENT
  Age: 45 Year
  Sex: Female

DRUGS (2)
  1. WELLBUTRIN XL [Suspect]
     Dosage: 450MG PER DAY
     Route: 048
     Dates: start: 20040201
  2. LAMICTAL [Concomitant]
     Dosage: 200MG PER DAY
     Route: 048
     Dates: start: 20040505

REACTIONS (2)
  - DYSGEUSIA [None]
  - MANIA [None]
